FAERS Safety Report 16188518 (Version 1)
Quarter: 2019Q2

REPORT INFORMATION
  Report Type: Spontaneous
  Country: CN (occurrence: CN)
  Receive Date: 20190412
  Receipt Date: 20190412
  Transmission Date: 20190711
  Serious: Yes (Other)
  Sender: FDA-Public Use
  Company Number: CN-ROCHE-2294994

PATIENT
  Age: 41 Year
  Sex: Male

DRUGS (4)
  1. PREDNISONE. [Concomitant]
     Active Substance: PREDNISONE
     Indication: IMMUNOSUPPRESSION
  2. MYCOPHENOLATE MOFETIL. [Suspect]
     Active Substance: MYCOPHENOLATE MOFETIL
     Indication: IMMUNOSUPPRESSION
     Route: 065
  3. TACROLIMUS. [Concomitant]
     Active Substance: TACROLIMUS
     Indication: IMMUNOSUPPRESSION
  4. SIMULECT [Concomitant]
     Active Substance: BASILIXIMAB

REACTIONS (6)
  - Renal tubular disorder [Unknown]
  - Ascites [Unknown]
  - Generalised oedema [Unknown]
  - Urine analysis abnormal [Unknown]
  - Mesangioproliferative glomerulonephritis [Unknown]
  - Delayed graft function [Unknown]
